FAERS Safety Report 4427295-2 (Version None)
Quarter: 2004Q3

REPORT INFORMATION
  Report Type: 
  Country: None (occurrence: None)
  Receive Date: 20040812
  Receipt Date: 20040729
  Transmission Date: 20050211
  Serious: Yes (Death)
  Sender: FDA-Public Use
  Company Number: 04H-153-0268543-00

PATIENT
  Age: 39 Year
  Sex: Male

DRUGS (2)
  1. MORPHINE SULFATE INJECTION, USP, PRESERVATIVE FREE 1.0MG/ML (MORHINE S [Suspect]
     Indication: PAIN
     Dosage: 10 MG, ONCE, INTRAVENOUS
     Route: 042
  2. NALOXONE [Suspect]
     Indication: RESPIRATORY DEPRESSION
     Dosage: 0.4 MG, ONCE, INTRAVENOUS
     Route: 042

REACTIONS (3)
  - ACUTE PULMONARY OEDEMA [None]
  - MIOSIS [None]
  - RESPIRATORY DEPRESSION [None]
